FAERS Safety Report 11968731 (Version 1)
Quarter: 2016Q1

REPORT INFORMATION
  Report Type: Spontaneous
  Country: PH (occurrence: PH)
  Receive Date: 20160128
  Receipt Date: 20160128
  Transmission Date: 20160526
  Serious: Yes (Hospitalization)
  Sender: FDA-Public Use
  Company Number: PH-009507513-1601PHL009544

PATIENT
  Sex: Female

DRUGS (1)
  1. JANUMET [Suspect]
     Active Substance: METFORMIN HYDROCHLORIDE\SITAGLIPTIN PHOSPHATE
     Indication: DIABETES MELLITUS
     Dosage: ONE TABLET ONCE A DAY
     Route: 048
     Dates: start: 201302

REACTIONS (4)
  - Arthropod bite [Unknown]
  - Inappropriate schedule of drug administration [Unknown]
  - Purulence [Unknown]
  - Wound [Unknown]

NARRATIVE: CASE EVENT DATE: 201302
